FAERS Safety Report 9686304 (Version 1)
Quarter: 2013Q4

REPORT INFORMATION
  Report Type: Spontaneous
  Country: FR (occurrence: FR)
  Receive Date: 20131113
  Receipt Date: 20131113
  Transmission Date: 20140711
  Serious: Yes (Hospitalization)
  Sender: FDA-Public Use
  Company Number: FR-ABBVIE-13P-056-1166855-00

PATIENT
  Age: 74 Year
  Sex: Female

DRUGS (8)
  1. HUMIRA [Suspect]
     Indication: PSORIASIS
     Route: 058
     Dates: start: 2008, end: 2013
  2. RENITEC [Concomitant]
     Indication: HYPERTENSION
     Route: 048
  3. LERCANIDIPINE (LRECAN) [Concomitant]
     Indication: HYPERTENSION
     Route: 048
  4. SERETIDE [Concomitant]
     Indication: CHRONIC OBSTRUCTIVE PULMONARY DISEASE
     Route: 055
  5. TIOTROPIUM [Concomitant]
     Indication: CHRONIC OBSTRUCTIVE PULMONARY DISEASE
     Route: 055
  6. PRAVASTATINE [Concomitant]
     Indication: DYSLIPIDAEMIA
     Route: 048
  7. MACROGOL [Concomitant]
     Indication: CONSTIPATION
     Route: 048
  8. CLOTIAZEPAM [Concomitant]
     Indication: INSOMNIA
     Route: 048

REACTIONS (3)
  - General physical health deterioration [Unknown]
  - Ovarian cancer [Unknown]
  - Abdominal pain [Unknown]
